FAERS Safety Report 12165925 (Version 2)
Quarter: 2016Q2

REPORT INFORMATION
  Report Type: Spontaneous
  Country: US (occurrence: US)
  Receive Date: 20160309
  Receipt Date: 20160530
  Transmission Date: 20160815
  Serious: No
  Sender: FDA-Public Use
  Company Number: US-ASTRAZENECA-2016SE21671

PATIENT
  Sex: Female
  Weight: 81.6 kg

DRUGS (3)
  1. PULMICORT FLEXHALER [Suspect]
     Active Substance: BUDESONIDE
     Indication: ASTHMA
     Dosage: 180 UG, 1 PUFF BID
     Route: 055
  2. PULMICORT FLEXHALER [Suspect]
     Active Substance: BUDESONIDE
     Indication: ASTHMA
     Dosage: 180 UG, 1 PUFF DAILY
     Route: 055
  3. PULMICORT FLEXHALER [Suspect]
     Active Substance: BUDESONIDE
     Indication: ASTHMA
     Dosage: 180 UG, 1 PUFF BID
     Route: 055
     Dates: start: 20160222

REACTIONS (5)
  - Cough [Unknown]
  - Drug dose omission [Unknown]
  - Device malfunction [Unknown]
  - Off label use [Unknown]
  - Bronchitis [Unknown]
